FAERS Safety Report 4627794-4 (Version None)
Quarter: 2005Q2

REPORT INFORMATION
  Report Type: 
  Country: None (occurrence: None)
  Receive Date: 20050406
  Receipt Date: 20050127
  Transmission Date: 20051028
  Serious: Yes (Hospitalization)
  Sender: FDA-Public Use
  Company Number: US-BRISTOL-MYERS SQUIBB COMPANY-12840112

PATIENT
  Age: 72 Year
  Sex: Male
  Weight: 55 kg

DRUGS (4)
  1. CETUXIMAB [Suspect]
     Indication: COLORECTAL CANCER METASTATIC
     Dosage: INTERRUPTED 21-JAN-2005.  LAST DOSE ADMINISTERED 15-MAR-2005.
     Route: 042
  2. CAPECITABINE [Suspect]
     Indication: COLORECTAL CANCER METASTATIC
     Dosage: 1500 MG TWICE DAILY X 7.  INTERRUPTED 21-JAN-2005.
     Route: 048
  3. OXALIPLATIN [Suspect]
     Indication: COLORECTAL CANCER METASTATIC
     Dosage: INTERRUPTED 21-JAN-2005.
     Route: 042
  4. FLAGYL [Suspect]
     Indication: CLOSTRIDIUM COLITIS
     Route: 048

REACTIONS (5)
  - ACUTE SINUSITIS [None]
  - BLOOD BILIRUBIN INCREASED [None]
  - BLOOD PRESSURE DIASTOLIC DECREASED [None]
  - CLOSTRIDIUM COLITIS [None]
  - CONVULSION [None]
